FAERS Safety Report 24566534 (Version 2)
Quarter: 2024Q4

REPORT INFORMATION
  Report Type: Report from Study
  Country: CA (occurrence: CA)
  Receive Date: 20241030
  Receipt Date: 20241108
  Transmission Date: 20250115
  Serious: No
  Sender: JOHNSON AND JOHNSON
  Company Number: CA-JNJFOC-20241074854

PATIENT
  Age: 16 Year
  Sex: Male
  Weight: 68 kg

DRUGS (1)
  1. REMICADE [Suspect]
     Active Substance: INFLIXIMAB
     Indication: Crohn^s disease
     Route: 041
     Dates: start: 20230706

REACTIONS (1)
  - Productive cough [Unknown]

NARRATIVE: CASE EVENT DATE: 20241001
